FAERS Safety Report 13435446 (Version 2)
Quarter: 2017Q2

REPORT INFORMATION
  Report Type: Spontaneous
  Country: JP (occurrence: JP)
  Receive Date: 20170413
  Receipt Date: 20170530
  Transmission Date: 20170830
  Serious: Yes (Hospitalization, Other)
  Sender: FDA-Public Use
  Company Number: JP-GLAXOSMITHKLINE-JP2017JPN050762

PATIENT
  Age: 73 Year
  Sex: Male

DRUGS (2)
  1. FLUTIDE [Suspect]
     Active Substance: FLUTICASONE PROPIONATE
     Indication: ASTHMA
     Dosage: UNK
     Route: 055
  2. SERETIDE [Suspect]
     Active Substance: FLUTICASONE PROPIONATE\SALMETEROL XINAFOATE
     Indication: ASTHMA
     Dosage: UNK
     Route: 055

REACTIONS (6)
  - Muscle spasms [Recovered/Resolved]
  - Hypoaesthesia [Recovered/Resolved]
  - Pneumonia [Recovered/Resolved]
  - Pyrexia [Unknown]
  - Herpes zoster [Unknown]
  - Pneumonia pneumococcal [Unknown]

NARRATIVE: CASE EVENT DATE: 2015
